FAERS Safety Report 9113424 (Version 8)
Quarter: 2014Q2

REPORT INFORMATION
  Report Type: Spontaneous
  Country: CA (occurrence: CA)
  Receive Date: 20130129
  Receipt Date: 20140502
  Transmission Date: 20141212
  Serious: Yes (Hospitalization)
  Sender: FDA-Public Use
  Company Number: CA-GLAXOSMITHKLINE-A0981006A

PATIENT
  Age: 46 Year
  Sex: Female
  Weight: 60 kg

DRUGS (5)
  1. BENLYSTA [Suspect]
     Indication: SYSTEMIC LUPUS ERYTHEMATOSUS
     Dosage: 560MG SEE DOSAGE TEXT
     Route: 042
     Dates: start: 20120412
  2. UNKNOWN DEVICE [Suspect]
     Indication: PRODUCT USED FOR UNKNOWN INDICATION
     Route: 065
  3. NOVOPHENIRAM [Concomitant]
  4. MEDROL [Concomitant]
     Dosage: 1MG PER DAY
  5. PNEUMOCOCCAL VACCINE [Concomitant]
     Indication: PROPHYLAXIS
     Dates: start: 20140322, end: 20140322

REACTIONS (17)
  - Systemic lupus erythematosus [Unknown]
  - Chills [Unknown]
  - Feeling hot [Unknown]
  - Infusion related reaction [Unknown]
  - Throat irritation [Unknown]
  - Drug ineffective [Unknown]
  - Weight increased [Unknown]
  - Underdose [Unknown]
  - Fall [Unknown]
  - Arthralgia [Unknown]
  - Meniscus injury [Unknown]
  - Pain [Unknown]
  - Pneumonia [Unknown]
  - Blood test abnormal [Unknown]
  - White blood cell count decreased [Unknown]
  - Red blood cell count decreased [Unknown]
  - Lower respiratory tract infection [Unknown]
